FAERS Safety Report 16027157 (Version 1)
Quarter: 2019Q1

REPORT INFORMATION
  Report Type: Spontaneous
  Country: US (occurrence: US)
  Receive Date: 20190303
  Receipt Date: 20190303
  Transmission Date: 20190418
  Serious: Yes (Other)
  Sender: FDA-Public Use
  Company Number: US-JIANGSU HENGRUI MEDICINE CO., LTD.-2063477

PATIENT
  Age: 28 Year
  Sex: Female

DRUGS (3)
  1. CALCIUM LEVOFOLINATE [Suspect]
     Active Substance: LEVOLEUCOVORIN CALCIUM
     Route: 042
  2. FLUOROURACIS [FLUOROURACIL] [Suspect]
     Active Substance: FLUOROURACIL
     Route: 042
  3. IRINOTECAN HYDROCHLORIDE INJECTION, 20 MG/ML (2 ML AND 5 ML VIALS) (AN [Suspect]
     Active Substance: IRINOTECAN HYDROCHLORIDE
     Indication: METASTATIC GASTRIC CANCER
     Route: 042

REACTIONS (4)
  - Posterior reversible encephalopathy syndrome [Unknown]
  - Cardiogenic shock [None]
  - Acute respiratory failure [None]
  - Septic shock [None]
